FAERS Safety Report 11323103 (Version 4)
Quarter: 2016Q1

REPORT INFORMATION
  Report Type: Spontaneous
  Country: DE (occurrence: DE)
  Receive Date: 20150730
  Receipt Date: 20160330
  Transmission Date: 20160525
  Serious: Yes (Death, Other)
  Sender: FDA-Public Use
  Company Number: DE-AMGEN-DEUSP2015075591

PATIENT
  Age: 71 Year
  Sex: Female
  Weight: 47.3 kg

DRUGS (17)
  1. XGEVA [Suspect]
     Active Substance: DENOSUMAB
     Indication: METASTASES TO BONE
     Dosage: 120 MG, UNK
     Route: 058
     Dates: start: 20140228, end: 20140901
  2. VINORELBINE [Concomitant]
     Active Substance: VINORELBINE\VINORELBINE TARTRATE
     Dosage: 50 MG/M2, UNK
     Dates: start: 20140307, end: 20140915
  3. IBUPROFEN. [Concomitant]
     Active Substance: IBUPROFEN
  4. ADDEL N                            /01412701/ [Concomitant]
     Active Substance: CHROMIC CATION\CUPRIC CATION\FERROUS CATION\FLUORIDE ION\IODIDE ION\MANGANESE CATION (2+)\SODIUM SELENIDE\ZINC CATION
     Dosage: 1000 ML, UNK
     Dates: start: 20140729
  5. STEROFUNDIN [Concomitant]
     Dosage: 500 ML, UNK
     Dates: start: 20140321, end: 20140324
  6. NORSPAN [Concomitant]
     Active Substance: BUPRENORPHINE
     Dosage: UNK
     Dates: start: 20140218
  7. OLIMEL [Concomitant]
     Active Substance: AMINO ACIDS\DEXTROSE\SOYBEAN OIL
     Dosage: 1000 ML, UNK
     Dates: start: 20140620, end: 20140728
  8. CLINDAMYCIN [Concomitant]
     Active Substance: CLINDAMYCIN\CLINDAMYCIN PHOSPHATE
     Indication: PROPHYLAXIS
     Dosage: 1200 MG, UNK
     Dates: start: 20140331, end: 20140411
  9. SUPRADYN                           /01742801/ [Concomitant]
     Dosage: UNK
     Dates: start: 20140324, end: 20140620
  10. CLEXANE [Concomitant]
     Active Substance: ENOXAPARIN SODIUM
     Indication: PROPHYLAXIS
     Dosage: 40 MG, UNK
     Dates: start: 20140320, end: 20140327
  11. GRANISETRON [Concomitant]
     Active Substance: GRANISETRON
     Dosage: 1 MG, UNK
     Dates: start: 20140519
  12. KALINOR                            /00031402/ [Concomitant]
     Active Substance: POTASSIUM CITRATE
     Dosage: 1.56 G, UNK
     Dates: start: 20140324, end: 20140329
  13. DULCOLAX (BISACODYL) [Concomitant]
     Active Substance: BISACODYL
     Dosage: UNK
     Dates: start: 20140519, end: 20140519
  14. CERNEVIT [Concomitant]
     Active Substance: VITAMINS
  15. TARGIN [Concomitant]
     Active Substance: NALOXONE HYDROCHLORIDE\OXYCODONE HYDROCHLORIDE
     Dosage: UNK
     Dates: start: 20140219, end: 20140527
  16. METOCLOPRAMID                      /00041901/ [Concomitant]
     Dosage: UNK
     Route: 048
     Dates: start: 20140515
  17. NACL [Concomitant]
     Active Substance: SODIUM CHLORIDE
     Dosage: 500 ML, UNK
     Dates: start: 20140321, end: 20140321

REACTIONS (15)
  - Osteonecrosis of jaw [Not Recovered/Not Resolved]
  - Gamma-glutamyltransferase increased [Not Recovered/Not Resolved]
  - Hypocalcaemia [Not Recovered/Not Resolved]
  - Blood urea increased [Not Recovered/Not Resolved]
  - Alanine aminotransferase increased [Not Recovered/Not Resolved]
  - Urinary incontinence [Not Recovered/Not Resolved]
  - Abdominal pain [Not Recovered/Not Resolved]
  - Hypoalbuminaemia [Not Recovered/Not Resolved]
  - Dyspnoea [Not Recovered/Not Resolved]
  - Monocyte count increased [Not Recovered/Not Resolved]
  - Death [Fatal]
  - Fatigue [Not Recovered/Not Resolved]
  - Lung infection [Not Recovered/Not Resolved]
  - Lymphocyte count decreased [Not Recovered/Not Resolved]
  - Aspartate aminotransferase increased [Not Recovered/Not Resolved]

NARRATIVE: CASE EVENT DATE: 20140228
